FAERS Safety Report 5363173-2 (Version None)
Quarter: 2007Q2

REPORT INFORMATION
  Report Type: 
  Country: None (occurrence: None)
  Receive Date: 20070620
  Receipt Date: 20070612
  Transmission Date: 20071010
  Serious: Yes (Hospitalization, Other)
  Sender: FDA-Public Use
  Company Number: PHBS2007JP07987

PATIENT
  Age: 26 Year
  Sex: Female

DRUGS (9)
  1. TEGRETOL [Suspect]
     Indication: DEPRESSION
     Dosage: 2000 MG, ONCE/SINGLE
     Route: 048
     Dates: start: 20070509, end: 20070509
  2. TEGRETOL [Suspect]
     Dosage: 100 MG, TID
     Route: 048
  3. LEXOTAN [Suspect]
     Dosage: 60 MG, ONCE/SINGLE
     Route: 048
     Dates: start: 20070509, end: 20070509
  4. HIRNAMIN [Suspect]
     Dosage: 300 MG, ONCE/SINGLE
     Route: 048
     Dates: start: 20070509, end: 20070509
  5. VEGETAMIN A [Suspect]
     Dosage: 24 DF, ONCE/SINGLE
     Route: 048
     Dates: start: 20070509, end: 20070509
  6. CONSTAN [Suspect]
     Dosage: 4 MG, ONCE/SINGLE
     Route: 048
     Dates: start: 20070509, end: 20070509
  7. PZC [Suspect]
     Dosage: 40 MG, ONCE/SINGLE
     Route: 048
     Dates: start: 20070509, end: 20070509
  8. SOLANAX [Suspect]
     Dosage: 10 DF, ONCE/SINGLE
     Route: 048
     Dates: start: 20070509, end: 20070509
  9. PAXIL [Suspect]
     Dosage: 10 MG, ONCE/SINGLE
     Route: 048
     Dates: start: 20070509, end: 20070509

REACTIONS (8)
  - ASPARTATE AMINOTRANSFERASE INCREASED [None]
  - BLOOD CREATINE PHOSPHOKINASE INCREASED [None]
  - BLOOD LACTATE DEHYDROGENASE INCREASED [None]
  - C-REACTIVE PROTEIN INCREASED [None]
  - LOSS OF CONSCIOUSNESS [None]
  - OVERDOSE [None]
  - OXYGEN SATURATION DECREASED [None]
  - WHITE BLOOD CELL COUNT INCREASED [None]
